FAERS Safety Report 14298391 (Version 3)
Quarter: 2018Q3

REPORT INFORMATION
  Report Type: Report from Study
  Country: JP (occurrence: JP)
  Receive Date: 20171218
  Receipt Date: 20180919
  Transmission Date: 20181010
  Serious: Yes (Hospitalization)
  Sender: FDA-Public Use
  Company Number: PHJP2017JP036389

PATIENT
  Age: 40 Year
  Sex: Male
  Weight: 95 kg

DRUGS (9)
  1. SIGNIFOR LAR [Suspect]
     Active Substance: PASIREOTIDE
     Dosage: 40 MG, QD
     Route: 030
     Dates: start: 20170529
  2. SIGNIFOR LAR [Suspect]
     Active Substance: PASIREOTIDE
     Dosage: 40 MG, QD
     Route: 030
     Dates: start: 20170403
  3. SIGNIFOR LAR [Suspect]
     Active Substance: PASIREOTIDE
     Dosage: 40 MG, QD
     Route: 030
     Dates: start: 20170626
  4. SIGNIFOR LAR [Suspect]
     Active Substance: PASIREOTIDE
     Dosage: 40 MG, QD
     Route: 030
     Dates: start: 20170828
  5. CORTRIL [Concomitant]
     Active Substance: HYDROCORTISONE
     Indication: GIGANTISM
     Dosage: 10 MG, UNK
     Route: 048
  6. SIGNIFOR LAR [Suspect]
     Active Substance: PASIREOTIDE
     Indication: GIGANTISM
     Dosage: 40 MG, QD
     Route: 030
     Dates: start: 20170302
  7. SIGNIFOR LAR [Suspect]
     Active Substance: PASIREOTIDE
     Dosage: 40 MG, QD
     Route: 030
     Dates: start: 20170501
  8. SIGNIFOR LAR [Suspect]
     Active Substance: PASIREOTIDE
     Dosage: 40 MG, QD
     Route: 030
     Dates: start: 20170731
  9. SIGNIFOR LAR [Suspect]
     Active Substance: PASIREOTIDE
     Dosage: 40 MG, QD
     Route: 030
     Dates: start: 20171002

REACTIONS (1)
  - Cerebrospinal fluid leakage [Recovered/Resolved]

NARRATIVE: CASE EVENT DATE: 20171002
